FAERS Safety Report 9156376 (Version 1)
Quarter: 2013Q1

REPORT INFORMATION
  Report Type: Spontaneous
  Country: US (occurrence: None)
  Receive Date: 20130308
  Receipt Date: 20130308
  Transmission Date: 20140127
  Serious: Yes (Hospitalization)
  Sender: FDA-Public Use
  Company Number: None

PATIENT
  Age: 70 Year
  Sex: Male
  Weight: 95 kg

DRUGS (1)
  1. ENALAPRIL [Suspect]
     Indication: HYPERTENSION
     Dosage: MG EVERY DAY PO
     Route: 048
     Dates: start: 20071209, end: 20130302

REACTIONS (1)
  - Angioedema [None]
